FAERS Safety Report 5570158-X (Version None)
Quarter: 2007Q4

REPORT INFORMATION
  Report Type: 
  Country: None (occurrence: None)
  Receive Date: 20071220
  Receipt Date: 20071210
  Transmission Date: 20080405
  Serious: Yes (Other)
  Sender: FDA-Public Use
  Company Number: JP-PFIZER INC-2007104513

PATIENT
  Age: 3 Year
  Sex: Male

DRUGS (7)
  1. ZITHROMAX [Suspect]
     Indication: BRONCHITIS
     Dosage: DAILY DOSE:130MG
     Route: 048
     Dates: start: 20071112, end: 20071114
  2. CLARITHROMYCIN [Concomitant]
     Dates: start: 20071105, end: 20071105
  3. FOSMICIN [Concomitant]
  4. HUSCODE [Concomitant]
     Dates: start: 20071105, end: 20071115
  5. MUCOSOLVAN [Concomitant]
     Dates: start: 20071105, end: 20071115
  6. POLARAMINE [Concomitant]
     Dates: start: 20071105, end: 20071115
  7. HOKUNALIN [Concomitant]
     Dates: start: 20071105, end: 20071115

REACTIONS (1)
  - SKIN EXFOLIATION [None]
